FAERS Safety Report 9228336 (Version 1)
Quarter: 2013Q2

REPORT INFORMATION
  Report Type: Spontaneous
  Country: DK (occurrence: DK)
  Receive Date: 20130412
  Receipt Date: 20130412
  Transmission Date: 20140414
  Serious: Yes (Other)
  Sender: FDA-Public Use
  Company Number: DK-JNJFOC-20130402994

PATIENT
  Sex: 0
  Weight: 2.85 kg

DRUGS (5)
  1. INFLIXIMAB, RECOMBINANT [Suspect]
     Indication: FOETAL EXPOSURE DURING PREGNANCY
     Dosage: 4 INFUSIONS
     Route: 064
  2. 5-AMINOSALICYLIC ACID [Suspect]
     Indication: FOETAL EXPOSURE DURING PREGNANCY
     Route: 065
  3. 5-AMINOSALICYLIC ACID [Suspect]
     Indication: FOETAL EXPOSURE DURING PREGNANCY
     Route: 065
  4. METHYLPREDNISOLONE [Suspect]
     Indication: FOETAL EXPOSURE DURING PREGNANCY
     Route: 042
  5. METHYLPREDNISOLONE [Suspect]
     Indication: FOETAL EXPOSURE DURING PREGNANCY
     Route: 042

REACTIONS (2)
  - Premature baby [Not Recovered/Not Resolved]
  - Maternal drugs affecting foetus [None]
